FAERS Safety Report 18941932 (Version 1)
Quarter: 2021Q1

REPORT INFORMATION
  Report Type: Spontaneous
  Country: RU (occurrence: RU)
  Receive Date: 20210225
  Receipt Date: 20210225
  Transmission Date: 20210420
  Serious: Yes (Other)
  Sender: FDA-Public Use
  Company Number: RU-ASTRAZENECA-2021A060882

PATIENT
  Age: 64 Year
  Sex: Female

DRUGS (9)
  1. VERAPAMIL [Concomitant]
     Active Substance: VERAPAMIL HYDROCHLORIDE
     Indication: HYPERTENSION
     Dosage: 240 MG, SINGLE DOSE 240 MG PER OS
     Dates: start: 20200924, end: 20201018
  2. SERETIDE [Concomitant]
     Active Substance: FLUTICASONE PROPIONATE\SALMETEROL XINAFOATE
     Indication: ASTHMA
     Dosage: 50/250 MCG, SINGLE DOSE 50 MCG
     Route: 055
     Dates: start: 20200817, end: 20200917
  3. VERAPAMIL?LEKT [Concomitant]
     Indication: HYPERTENSION
     Dosage: 80 MG, PER SO
     Dates: start: 20200818, end: 20200910
  4. SYMBICORT [Suspect]
     Active Substance: BUDESONIDE\FORMOTEROL FUMARATE DIHYDRATE
     Indication: ASTHMA
     Dosage: 160/4.5 MCG/DOSE 2 DAYS UNKNOWN
     Route: 055
     Dates: start: 20201009, end: 20201012
  5. ZODAC [Concomitant]
     Active Substance: CETIRIZINE HYDROCHLORIDE
     Indication: ASTHMA
     Dosage: 10 MG/ML 20 DROPS, SINGLE DOSE 10 MG, PER OS
     Dates: start: 20201009, end: 20201020
  6. PREDNISOLONE. [Concomitant]
     Active Substance: PREDNISOLONE
     Indication: ASTHMA
     Dosage: 5 MG, SINGLE DOSE 5 MG, PER OS
     Dates: start: 20201012, end: 20201019
  7. BERODUAL N [Concomitant]
     Active Substance: FENOTEROL HYDROBROMIDE\IPRATROPIUM BROMIDE
     Indication: ASTHMA
     Dosage: 20 MCG/50 MCG, SINGLE DOSE 20 MCG
     Route: 055
     Dates: start: 20201009, end: 20201019
  8. BERODUAL [Concomitant]
     Active Substance: FENOTEROL HYDROBROMIDE\IPRATROPIUM BROMIDE
     Indication: ASTHMA
     Dosage: 0.25/0.5 ML
     Route: 055
     Dates: start: 20200824, end: 20200924
  9. SPIRIVA RESPIMAT [Concomitant]
     Active Substance: TIOTROPIUM BROMIDE
     Indication: ASTHMA
     Dosage: 2.5 MCG, SINGLE DOSE 2 MCG
     Route: 055
     Dates: start: 20200818, end: 20200919

REACTIONS (2)
  - Dyspnoea [Recovering/Resolving]
  - Asthma [Recovering/Resolving]

NARRATIVE: CASE EVENT DATE: 20201010
